FAERS Safety Report 8525909 (Version 2)
Quarter: 2013Q1

REPORT INFORMATION
  Report Type: Spontaneous
  Country: US (occurrence: US)
  Receive Date: 20120423
  Receipt Date: 20130109
  Transmission Date: 20140127
  Serious: No
  Sender: FDA-Public Use
  Company Number: US-UCBSA-055243

PATIENT
  Age: 56 Year
  Sex: Female

DRUGS (23)
  1. LORTAB [Suspect]
  2. ACCURETIC [Concomitant]
     Dosage: 20-12.5 MG PER TABLET
     Route: 048
  3. CELEXA [Concomitant]
     Route: 048
  4. CRESTOR [Concomitant]
     Dosage: EVERY EVENING
     Route: 048
  5. CYANOCOBALAMIN [Concomitant]
     Dosage: 1,000 MCG/ML 1 SHOT DAILY FOR 4 DAYS
  6. CYANOCOBALAMIN [Concomitant]
     Dosage: I SHOT WEEKLY FOR 4 WEEKS, 1,000 MCG/ML
  7. CYANOCOBALAMIN [Concomitant]
     Dosage: 1 SHOT MONTHLY, 1,000 MCG/ML
  8. CYANOCOBALAMIN [Concomitant]
     Route: 060
  9. VASOTEC [Concomitant]
     Dosage: 20 MG , WITH 1/2 HCTZ UNTIL YOUR ACCURECTIC COMES IN.
  10. HYDRODIURIL [Concomitant]
     Dosage: 25 MG ,TAKE 1/2 PILL DAILY WITH ENALAPRIL UNTIL YOUR ACCURETIC COMES IN
  11. POLY IRON [Concomitant]
     Indication: ANAEMIA
     Route: 048
  12. VITAMIN C [Concomitant]
  13. LEVEMIR FLEXPEN [Concomitant]
     Dosage: 100 UNIT/ML(3 ML) LNPN ,INJECT 10 UNITS INTO THE SKIN NIGHTLY.
  14. PRINZIDE,ZESTORETIC [Concomitant]
     Dosage: 20-25 MG , EVERY MORNING
     Route: 048
  15. GLUCOPHAGE [Concomitant]
     Dosage: WITH MEALS
     Route: 048
  16. ACTOS [Concomitant]
     Route: 048
  17. JANUMET [Concomitant]
     Dosage: WITH MEALS, 50-1,000 MG
     Route: 048
  18. JANUMET [Concomitant]
     Dosage: WITH MEALS, 50-1,000 MG
     Route: 048
  19. TOPROL XL [Concomitant]
     Route: 048
  20. VICTOZA [Concomitant]
     Dosage: 0.6MG/0.1 ML (18 MG/3 ML) PNLJ
     Route: 023
  21. VITAMIN D-3 [Concomitant]
     Dosage: 3,5000 UNIT TAB
     Route: 048
  22. COUMADIN [Concomitant]
     Dosage: 5 MG , I TAB MONDAY, WEDNESDAY, D; 1.5 TAB ALL THE REST
  23. NORVASC [Concomitant]
     Route: 048

REACTIONS (1)
  - Drug hypersensitivity [Unknown]
